FAERS Safety Report 16628906 (Version 2)
Quarter: 2019Q3

REPORT INFORMATION
  Report Type: Spontaneous
  Country: IT (occurrence: IT)
  Receive Date: 20190725
  Receipt Date: 20190904
  Transmission Date: 20191004
  Serious: Yes (Other)
  Sender: FDA-Public Use
  Company Number: IT-009507513-1907ITA010206

PATIENT
  Age: 74 Year
  Sex: Female

DRUGS (2)
  1. SINEMET [Suspect]
     Active Substance: CARBIDOPA\LEVODOPA
     Dosage: UNK
     Route: 048
  2. SINEMET [Suspect]
     Active Substance: CARBIDOPA\LEVODOPA
     Indication: PARKINSON^S DISEASE
     Dosage: 25/100 MG
     Route: 048

REACTIONS (6)
  - Mutism [Recovered/Resolved]
  - Drug ineffective [Recovered/Resolved]
  - Akinesia [Recovered/Resolved]
  - Product physical issue [Unknown]
  - Tremor [Recovered/Resolved]
  - Wrong technique in product usage process [Unknown]
